FAERS Safety Report 8213712-9 (Version None)
Quarter: 2012Q1

REPORT INFORMATION
  Report Type: 
  Country: None (occurrence: None)
  Receive Date: 20120315
  Receipt Date: 20120306
  Transmission Date: 20120608
  Serious: Yes (Other)
  Sender: FDA-Public Use
  Company Number: US-BAXTER-2012BH007088

PATIENT
  Sex: Male
  Weight: 86 kg

DRUGS (26)
  1. IMMUNE GLOBULIN INTRAVENOUS (HUMAN) [Suspect]
     Indication: IMMUNODEFICIENCY COMMON VARIABLE
     Route: 042
     Dates: start: 19970101
  2. SINGULAIR [Concomitant]
     Indication: ASTHMA
     Route: 065
  3. ASTELIN [Concomitant]
     Indication: CHRONIC SINUSITIS
     Route: 045
  4. NASAL SALINE [Concomitant]
     Indication: NASAL IRRIGATION
     Route: 045
  5. PREDNISONE TAB [Concomitant]
     Indication: BACTERIAL INFECTION
     Route: 065
  6. ALLOPURINOL [Concomitant]
     Indication: GOUT
     Route: 065
  7. OMEPRAZOLE [Concomitant]
     Indication: GASTROOESOPHAGEAL REFLUX DISEASE
     Route: 065
  8. AUGMENTIN '125' [Concomitant]
     Indication: ANTIBIOTIC PROPHYLAXIS
     Route: 048
     Dates: start: 19880101
  9. MELOXICAM [Concomitant]
     Indication: PAIN
     Route: 065
  10. SYNTHROID [Concomitant]
     Indication: HYPOPITUITARISM
     Route: 065
  11. ALPRAZOLAM [Concomitant]
     Indication: CEREBROVASCULAR ACCIDENT
     Route: 065
  12. NYSTATIN [Concomitant]
     Indication: CHRONIC SINUSITIS
     Route: 065
  13. CLINDAMYCIN [Concomitant]
     Indication: LOCALISED INFECTION
     Route: 048
  14. NIFEDIPINE [Concomitant]
     Indication: HYPERTENSION
     Route: 065
  15. LIOTHYRONINE SODIUM [Concomitant]
     Indication: HYPOPITUITARISM
     Route: 065
  16. TRIAMTERENE AND HYDROCHLOROTHIAZIDE [Concomitant]
     Indication: HYPERTENSION
     Route: 065
  17. ALISKIREN [Concomitant]
     Indication: HYPERTENSION
     Route: 065
  18. VICODIN [Concomitant]
     Indication: PAIN
     Route: 065
  19. ACETAMINOPHEN [Concomitant]
     Indication: PAIN
     Route: 065
  20. LISINOPRIL [Concomitant]
     Indication: HYPERTENSION
     Route: 065
  21. ANDROGEL [Concomitant]
     Indication: HYPOPITUITARISM
     Route: 065
  22. GUAIFENESIN [Concomitant]
     Indication: CHRONIC SINUSITIS
     Route: 065
  23. AMOXICILLIN AND CLAVULANATE POTASSIUM [Concomitant]
     Indication: CHRONIC SINUSITIS
     Route: 065
  24. MAXAIR [Concomitant]
     Indication: ASTHMA
     Route: 055
  25. ACYCLOVIR [Concomitant]
     Indication: VIRAL INFECTION
     Route: 065
  26. METOCLOPRAMIDE [Concomitant]
     Indication: GASTROOESOPHAGEAL REFLUX DISEASE
     Route: 065

REACTIONS (3)
  - THROMBOSIS [None]
  - CARDIAC DISORDER [None]
  - CEREBROVASCULAR ACCIDENT [None]
